FAERS Safety Report 7774803-X (Version None)
Quarter: 2011Q3

REPORT INFORMATION
  Report Type: 
  Country: None (occurrence: None)
  Receive Date: 20110920
  Receipt Date: 20110913
  Transmission Date: 20111222
  Serious: Yes (Hospitalization)
  Sender: FDA-Public Use
  Company Number: 2011SP043233

PATIENT
  Age: 58 Year
  Sex: Male

DRUGS (1)
  1. SAPHRIS [Suspect]
     Indication: BIPOLAR I DISORDER
     Dosage: 5 MG;BID;SL
     Route: 060
     Dates: start: 20110804, end: 20110807

REACTIONS (1)
  - ASTHMA [None]
